FAERS Safety Report 7955071-2 (Version None)
Quarter: 2011Q4

REPORT INFORMATION
  Report Type: 
  Country: None (occurrence: None)
  Receive Date: 20111129
  Receipt Date: 20111116
  Transmission Date: 20120403
  Serious: Yes (Hospitalization)
  Sender: FDA-Public Use
  Company Number: GER/UKI/11/0021978

PATIENT
  Age: 79 Year
  Sex: Female
  Weight: 66 kg

DRUGS (7)
  1. DIGOXIN [Concomitant]
  2. RAMIPRIL [Concomitant]
  3. CETIRIZINE [Concomitant]
  4. ACETAMINOPHEN [Concomitant]
  5. CO-AMILOFRUSE (FRUMIL) [Suspect]
     Indication: PRODUCT USED FOR UNKNOWN INDICATION
     Dosage: 1 DOSAGE FORMS, 1 IN 1 D
  6. ASPIRIN [Concomitant]
  7. OMEPRAZOLE [Suspect]
     Indication: PRODUCT USED FOR UNKNOWN INDICATION
     Dosage: 20 MG, 1 IN 1 D, ORAL
     Route: 048

REACTIONS (2)
  - HYPONATRAEMIA [None]
  - FALL [None]
